FAERS Safety Report 16759872 (Version 1)
Quarter: 2019Q3

REPORT INFORMATION
  Report Type: Spontaneous
  Country: FR (occurrence: FR)
  Receive Date: 20190830
  Receipt Date: 20190830
  Transmission Date: 20191005
  Serious: Yes (Hospitalization)
  Sender: FDA-Public Use
  Company Number: FR-PFIZER INC-2019369028

PATIENT
  Age: 75 Year
  Sex: Female
  Weight: 60 kg

DRUGS (5)
  1. ALVITYL [Concomitant]
     Active Substance: VITAMINS
     Indication: VITAMIN SUPPLEMENTATION
     Dosage: UNK
     Route: 048
     Dates: start: 20190109
  2. ONPATTRO [Suspect]
     Active Substance: PATISIRAN SODIUM
     Indication: CARDIAC AMYLOIDOSIS
     Dosage: 0.3 MG/KG, EVERY 3 WEEKS
     Route: 042
     Dates: start: 20190109, end: 20190403
  3. TRAMADOL HYDROCHLORIDE. [Suspect]
     Active Substance: TRAMADOL HYDROCHLORIDE
     Indication: NEURALGIA
     Dosage: 50 MG, 1X/DAY
     Route: 048
     Dates: start: 20160101
  4. NEURONTIN [Suspect]
     Active Substance: GABAPENTIN
     Indication: NEURALGIA
     Dosage: 1 DF, 1X/DAY
     Route: 048
     Dates: start: 20140301
  5. LEXOMIL [Concomitant]
     Active Substance: BROMAZEPAM
     Indication: ANXIETY
     Route: 048
     Dates: start: 20180101

REACTIONS (1)
  - Ischaemic stroke [Recovered/Resolved with Sequelae]

NARRATIVE: CASE EVENT DATE: 20190420
